FAERS Safety Report 24792046 (Version 1)
Quarter: 2024Q4

REPORT INFORMATION
  Report Type: Spontaneous
  Country: CN (occurrence: CN)
  Receive Date: 20241231
  Receipt Date: 20241231
  Transmission Date: 20250115
  Serious: Yes (Hospitalization, Other)
  Sender: KYOWA
  Company Number: CN-KYOWAKIRIN-2024KK029081

PATIENT

DRUGS (5)
  1. TOREMIFENE [Suspect]
     Active Substance: TOREMIFENE
     Indication: Breast cancer
     Dosage: 60 MG (60 MG,1 IN 1 D)
     Route: 048
     Dates: start: 20230731
  2. TOREMIFENE [Suspect]
     Active Substance: TOREMIFENE
     Dosage: 60 MG (60 MG,1 IN 1 D)
     Route: 048
     Dates: start: 20231103
  3. TOREMIFENE [Suspect]
     Active Substance: TOREMIFENE
     Dosage: 60 MG
     Route: 048
     Dates: start: 20240307, end: 20240328
  4. TRASTUZUMAB [Suspect]
     Active Substance: TRASTUZUMAB
     Indication: Chemotherapy
     Dosage: 520 MG, 1X/3 WEEKS
     Route: 065
     Dates: start: 20230731
  5. HERCEPTIN [Suspect]
     Active Substance: TRASTUZUMAB
     Indication: Product used for unknown indication
     Dosage: 420 MG
     Route: 042
     Dates: start: 20231103

REACTIONS (2)
  - Bicytopenia [Recovering/Resolving]
  - Platelet count decreased [Not Recovered/Not Resolved]

NARRATIVE: CASE EVENT DATE: 20240323
